FAERS Safety Report 8552894-6 (Version None)
Quarter: 2012Q3

REPORT INFORMATION
  Report Type: 
  Country: None (occurrence: None)
  Receive Date: 20120731
  Receipt Date: 20120713
  Transmission Date: 20120928
  Serious: No
  Sender: FDA-Public Use
  Company Number: US-BAYER-2012-071657

PATIENT
  Age: 33 Year
  Sex: Female
  Weight: 86 kg

DRUGS (1)
  1. ALEVE (CAPLET) [Suspect]
     Indication: ANALGESIC THERAPY
     Dosage: 2 DF, Q4HR
     Route: 048
     Dates: start: 20110501, end: 20110501

REACTIONS (1)
  - PAIN [None]
